FAERS Safety Report 18446726 (Version 7)
Quarter: 2021Q1

REPORT INFORMATION
  Report Type: Report from Study
  Country: PE (occurrence: PE)
  Receive Date: 20201030
  Receipt Date: 20210218
  Transmission Date: 20210419
  Serious: Yes (Other)
  Sender: FDA-Public Use
  Company Number: NVSC2020PE273151

PATIENT
  Age: 55 Year
  Sex: Female
  Weight: 73 kg

DRUGS (10)
  1. XOLAIR [Suspect]
     Active Substance: OMALIZUMAB
     Dosage: UNK
     Route: 065
     Dates: start: 20201013
  2. VALSARTAN. [Suspect]
     Active Substance: VALSARTAN
     Indication: HYPERTENSION
     Dosage: 80 MG
     Route: 065
     Dates: start: 2013
  3. RANITIDINE. [Concomitant]
     Active Substance: RANITIDINE
     Indication: CHRONIC GASTRITIS
     Dosage: 300 MG, Q24H
     Route: 048
     Dates: start: 202008
  4. XOLAIR [Suspect]
     Active Substance: OMALIZUMAB
     Indication: ASTHMA
     Dosage: 450 MG, BIW
     Route: 058
     Dates: start: 20191127
  5. VALSARTAN. [Suspect]
     Active Substance: VALSARTAN
     Dosage: 80 MG, Q12H
     Route: 048
     Dates: start: 2014
  6. IPRATROPIUM BROMIDE. [Concomitant]
     Active Substance: IPRATROPIUM BROMIDE
     Indication: ASTHMA
     Dosage: Q8H, 2 (UNITS NOT PROVIDED), FORMULATION: PUFF
     Route: 055
  7. FLUTICASONE. [Concomitant]
     Active Substance: FLUTICASONE
     Indication: ASTHMA
     Dosage: Q12H, 2 (UNITS NOT PROVIDED), FORMULATION: PUFF
     Route: 055
     Dates: start: 2018
  8. SALBUTAMOL [Concomitant]
     Active Substance: ALBUTEROL
     Indication: ASTHMA
     Dosage: CONDITIONAL, 3 (UNITS NOT PROVIDED), FORMULATION: PUFF
     Route: 055
  9. OMEPRAZOLE. [Concomitant]
     Active Substance: OMEPRAZOLE
     Indication: GASTRITIS
     Dosage: QD (SINCE 2006)
     Route: 065
     Dates: start: 2006
  10. ORPHENADRINE [Concomitant]
     Active Substance: ORPHENADRINE
     Indication: OSTEOARTHRITIS
     Dosage: 100 MG, Q12H
     Route: 048
     Dates: start: 202009

REACTIONS (18)
  - Application site pain [Recovered/Resolved]
  - Application site pain [Not Recovered/Not Resolved]
  - Tooth infection [Unknown]
  - Nausea [Unknown]
  - Dyspnoea [Not Recovered/Not Resolved]
  - Feeling abnormal [Not Recovered/Not Resolved]
  - Cough [Not Recovered/Not Resolved]
  - Toothache [Recovering/Resolving]
  - Application site erythema [Recovered/Resolved]
  - Dysgeusia [Recovered/Resolved]
  - Productive cough [Not Recovered/Not Resolved]
  - Somnolence [Not Recovered/Not Resolved]
  - Agitation [Recovered/Resolved]
  - Hypertension [Unknown]
  - Choking [Not Recovered/Not Resolved]
  - Discomfort [Not Recovered/Not Resolved]
  - Application site irritation [Recovered/Resolved]
  - Fatigue [Not Recovered/Not Resolved]

NARRATIVE: CASE EVENT DATE: 20191127
